FAERS Safety Report 14752917 (Version 1)
Quarter: 2018Q2

REPORT INFORMATION
  Report Type: Spontaneous
  Country: US (occurrence: US)
  Receive Date: 20180406
  Receipt Date: 20180406
  Transmission Date: 20180711
  Serious: Yes (Disabling)
  Sender: FDA-Public Use
  Company Number: None

PATIENT
  Age: 64 Year
  Sex: Male
  Weight: 94.5 kg

DRUGS (2)
  1. CIPRO [Suspect]
     Active Substance: CIPROFLOXACIN HYDROCHLORIDE
     Indication: BACTERIAL INFECTION
     Dosage: ?          QUANTITY:20 DF DOSAGE FORM;?
     Route: 048
     Dates: start: 20010301, end: 20010311
  2. JOINT SUPPLEMENTS [Concomitant]

REACTIONS (4)
  - Rotator cuff syndrome [None]
  - Arthralgia [None]
  - Tendon rupture [None]
  - Gait disturbance [None]

NARRATIVE: CASE EVENT DATE: 20010601
